FAERS Safety Report 21986878 (Version 1)
Quarter: 2023Q1

REPORT INFORMATION
  Report Type: Spontaneous
  Country: CN (occurrence: CN)
  Receive Date: 20230213
  Receipt Date: 20230213
  Transmission Date: 20230417
  Serious: Yes (Other)
  Sender: FDA-Public Use
  Company Number: CN-DSJP-DSJ-2023-105098

PATIENT
  Age: 83 Year
  Sex: Female
  Weight: 55 kg

DRUGS (1)
  1. EDOXABAN [Suspect]
     Active Substance: EDOXABAN
     Indication: Anticoagulant therapy
     Dosage: 30 MG, QD
     Route: 048
     Dates: start: 20221206, end: 20230202

REACTIONS (1)
  - Coagulopathy [Recovering/Resolving]

NARRATIVE: CASE EVENT DATE: 20230202
